FAERS Safety Report 5866605-6 (Version None)
Quarter: 2008Q3

REPORT INFORMATION
  Report Type: 
  Country: None (occurrence: None)
  Receive Date: 20080829
  Receipt Date: 20080829
  Transmission Date: 20090109
  Serious: Yes (Hospitalization)
  Sender: FDA-Public Use
  Company Number: None

PATIENT
  Sex: Male
  Weight: 90.9 kg

DRUGS (7)
  1. CARBOPLATIN [Suspect]
     Indication: TONSIL CANCER
     Dosage: AUC 6 A 4WKS IV
     Route: 042
     Dates: start: 20080804
  2. TAXOL [Suspect]
     Indication: TONSIL CANCER
     Dosage: 100MG/M2 IV QWK
     Route: 042
     Dates: start: 20080804
  3. TAXOL [Suspect]
     Indication: TONSIL CANCER
     Dosage: 100MG/M2 IV QWK
     Route: 042
     Dates: start: 20080811
  4. TAXOL [Suspect]
     Indication: TONSIL CANCER
     Dosage: 100MG/M2 IV QWK
     Route: 042
     Dates: start: 20080818
  5. CETUXIMAB [Suspect]
     Indication: TONSIL CANCER
     Dosage: 250 MG/M2 IV QWK
     Route: 042
     Dates: start: 20080804
  6. CETUXIMAB [Suspect]
     Indication: TONSIL CANCER
     Dosage: 250 MG/M2 IV QWK
     Route: 042
     Dates: start: 20080811
  7. CETUXIMAB [Suspect]
     Indication: TONSIL CANCER
     Dosage: 250 MG/M2 IV QWK
     Route: 042
     Dates: start: 20080818

REACTIONS (8)
  - COUGH [None]
  - DYSPNOEA [None]
  - INFECTION [None]
  - OBSTRUCTION [None]
  - PAIN [None]
  - PULMONARY OEDEMA [None]
  - PYREXIA [None]
  - RENAL DISORDER [None]
